FAERS Safety Report 11492387 (Version 3)
Quarter: 2015Q4

REPORT INFORMATION
  Report Type: Report from Study
  Country: DE (occurrence: DE)
  Receive Date: 20150910
  Receipt Date: 20151123
  Transmission Date: 20160304
  Serious: Yes (Death, Life-Threatening)
  Sender: FDA-Public Use
  Company Number: DE-ABBVIE-15P-062-1459584-00

PATIENT
  Age: 70 Year
  Sex: Female

DRUGS (4)
  1. DUODOPA [Suspect]
     Active Substance: CARBIDOPA\LEVODOPA
     Indication: PARKINSON^S DISEASE
     Dosage: MD 1.5ML, CRD 3.7ML/H, CRN 3.4ML/H, ED 1.9ML
     Route: 050
     Dates: start: 20110309
  2. DUODOPA [Suspect]
     Active Substance: CARBIDOPA\LEVODOPA
     Dosage: 3.2 ML/H
     Route: 050
     Dates: start: 2011, end: 2015
  3. LYRICA [Concomitant]
     Active Substance: PREGABALIN
     Indication: PAIN
     Route: 048
     Dates: start: 2013, end: 2015
  4. QUETIAPIN [Concomitant]
     Active Substance: QUETIAPINE
     Indication: PSYCHOTIC DISORDER
     Route: 048
     Dates: start: 2014, end: 2015

REACTIONS (3)
  - Generalised tonic-clonic seizure [Recovering/Resolving]
  - Hepatic failure [Fatal]
  - Polyneuropathy [Unknown]

NARRATIVE: CASE EVENT DATE: 20140106
